FAERS Safety Report 20434556 (Version 1)
Quarter: 2022Q1

REPORT INFORMATION
  Report Type: Report from Study
  Country: US (occurrence: US)
  Receive Date: 20220206
  Receipt Date: 20220206
  Transmission Date: 20220423
  Serious: Yes (Life-Threatening)
  Sender: FDA-Public Use
  Company Number: US-NOVARTISPH-NVSC2022US023972

PATIENT

DRUGS (2)
  1. ENTRESTO [Suspect]
     Active Substance: SACUBITRIL\VALSARTAN
     Indication: Hypotension
     Dosage: 49.51, BID
     Route: 048
     Dates: start: 20211201, end: 20211214
  2. ENTRESTO [Suspect]
     Active Substance: SACUBITRIL\VALSARTAN
     Indication: Dizziness

REACTIONS (2)
  - Dizziness [Unknown]
  - Product use in unapproved indication [Unknown]
